FAERS Safety Report 6182098-6 (Version None)
Quarter: 2009Q2

REPORT INFORMATION
  Report Type: 
  Country: None (occurrence: None)
  Receive Date: 20090507
  Receipt Date: 20090429
  Transmission Date: 20091009
  Serious: Yes (Hospitalization, Other)
  Sender: FDA-Public Use
  Company Number: DK-JNJFOC-20090406760

PATIENT
  Age: 33 Year
  Sex: Male

DRUGS (3)
  1. SERENASE [Suspect]
     Indication: DRUG USE FOR UNKNOWN INDICATION
     Dosage: FOR MANY YEARS
     Route: 065
  2. RIVOTRIL [Concomitant]
     Route: 065
  3. SUBUTEX [Concomitant]
     Route: 065

REACTIONS (3)
  - CARDIAC DISORDER [None]
  - HOSPITALISATION [None]
  - NERVOUS SYSTEM DISORDER [None]
